FAERS Safety Report 5453921-5 (Version None)
Quarter: 2007Q3

REPORT INFORMATION
  Report Type: 
  Country: None (occurrence: None)
  Receive Date: 20070917
  Receipt Date: 20070905
  Transmission Date: 20080115
  Serious: Yes (Other)
  Sender: FDA-Public Use
  Company Number: DEWYE267005SEP07

PATIENT
  Sex: Male
  Weight: 100 kg

DRUGS (1)
  1. TYGACIL [Suspect]
     Indication: PERITONITIS
     Route: 042
     Dates: start: 20070708, end: 20070717

REACTIONS (2)
  - LABORATORY TEST ABNORMAL [None]
  - TRANSAMINASES INCREASED [None]
